FAERS Safety Report 21065701 (Version 9)
Quarter: 2022Q3

REPORT INFORMATION
  Report Type: Report from Study
  Country: CA (occurrence: CA)
  Receive Date: 20220711
  Receipt Date: 20220923
  Transmission Date: 20221027
  Serious: Yes (Other)
  Sender: FDA-Public Use
  Company Number: CA-BRISTOL-MYERS SQUIBB COMPANY-2022-033594

PATIENT
  Age: 62 Year
  Sex: Male
  Weight: 98.6 kg

DRUGS (2)
  1. OPDIVO [Suspect]
     Active Substance: NIVOLUMAB
     Indication: Gastric cancer
     Route: 042
     Dates: start: 20220426
  2. OPDIVO [Suspect]
     Active Substance: NIVOLUMAB
     Route: 042
     Dates: start: 20220802

REACTIONS (55)
  - Lung disorder [Unknown]
  - Hypothyroidism [Unknown]
  - Thrombosis [Unknown]
  - Diarrhoea [Unknown]
  - Pollakiuria [Not Recovered/Not Resolved]
  - Dizziness [Unknown]
  - Headache [Unknown]
  - Dyspnoea [Not Recovered/Not Resolved]
  - Weight decreased [Unknown]
  - Feeling hot [Unknown]
  - Fatigue [Recovering/Resolving]
  - Asthenia [Unknown]
  - Myalgia [Unknown]
  - Contusion [Unknown]
  - Paraesthesia [Unknown]
  - Cough [Unknown]
  - Heart rate increased [Recovered/Resolved]
  - Frequent bowel movements [Unknown]
  - Swelling [Recovering/Resolving]
  - Malaise [Unknown]
  - Fatigue [Not Recovered/Not Resolved]
  - Myalgia [Recovered/Resolved]
  - Depression [Not Recovered/Not Resolved]
  - Rash [Unknown]
  - Decreased appetite [Unknown]
  - Pain [Not Recovered/Not Resolved]
  - Anxiety [Unknown]
  - Visual impairment [Unknown]
  - Feeling cold [Unknown]
  - Pallor [Not Recovered/Not Resolved]
  - Musculoskeletal stiffness [Unknown]
  - Pain in extremity [Unknown]
  - Abdominal distension [Unknown]
  - Disturbance in attention [Unknown]
  - Thirst [Unknown]
  - Temperature intolerance [Unknown]
  - Cough [Unknown]
  - Somnolence [Unknown]
  - Condition aggravated [Unknown]
  - Oedema peripheral [Unknown]
  - Irritability [Unknown]
  - Paraesthesia oral [Unknown]
  - Sensory loss [Unknown]
  - Muscle spasms [Recovered/Resolved]
  - Gait disturbance [Unknown]
  - Arthralgia [Recovering/Resolving]
  - Back pain [Unknown]
  - Constipation [Unknown]
  - Abdominal pain [Unknown]
  - Hernia [Unknown]
  - Neutrophil count decreased [Unknown]
  - Folliculitis [Unknown]
  - Infection [Unknown]
  - Nausea [Unknown]
  - Malaise [Unknown]

NARRATIVE: CASE EVENT DATE: 20220430
